FAERS Safety Report 14651697 (Version 1)
Quarter: 2018Q1

REPORT INFORMATION
  Report Type: Spontaneous
  Country: GB (occurrence: GB)
  Receive Date: 20180317
  Receipt Date: 20180317
  Transmission Date: 20180509
  Serious: Yes (Hospitalization)
  Sender: FDA-Public Use
  Company Number: GB-AUROBINDO-AUR-APL-2018-014619

PATIENT
  Age: 35 Year
  Sex: Female

DRUGS (6)
  1. TRAMADOL. [Concomitant]
     Active Substance: TRAMADOL
     Indication: PRODUCT USED FOR UNKNOWN INDICATION
     Dosage: UNK
     Route: 065
  2. VANCOMYCIN [Suspect]
     Active Substance: VANCOMYCIN
     Indication: UROSEPSIS
     Dosage: 1 MILLIGRAM
     Route: 042
  3. PARACETAMOL [Concomitant]
     Active Substance: ACETAMINOPHEN
     Indication: PRODUCT USED FOR UNKNOWN INDICATION
     Dosage: UNK
     Route: 065
  4. METFORMIN [Concomitant]
     Active Substance: METFORMIN HYDROCHLORIDE
     Indication: PRODUCT USED FOR UNKNOWN INDICATION
     Dosage: UNK
     Route: 065
  5. MEROPENEM. [Suspect]
     Active Substance: MEROPENEM
     Indication: UROSEPSIS
     Dosage: UNK
     Route: 042
  6. SALBUTAMOL [Concomitant]
     Active Substance: ALBUTEROL
     Indication: PRODUCT USED FOR UNKNOWN INDICATION
     Dosage: UNK
     Route: 065

REACTIONS (1)
  - Candida endophthalmitis [Unknown]
